FAERS Safety Report 6869031-6 (Version None)
Quarter: 2010Q3

REPORT INFORMATION
  Report Type: 
  Country: None (occurrence: None)
  Receive Date: 20100722
  Receipt Date: 20080702
  Transmission Date: 20110219
  Serious: No
  Sender: FDA-Public Use
  Company Number: US-PFIZER INC-2008058839

PATIENT
  Sex: Male
  Weight: 104.5 kg

DRUGS (9)
  1. CHANTIX [Suspect]
     Indication: SMOKING CESSATION THERAPY
     Dates: start: 20080629
  2. ENALAPRIL MALEATE [Concomitant]
  3. RESTORIL [Concomitant]
  4. SERAX [Concomitant]
  5. WELLBUTRIN [Concomitant]
  6. DRUG, UNSPECIFIED [Concomitant]
  7. PRILOSEC [Concomitant]
  8. HYDROCHLOROTHIAZIDE [Concomitant]
  9. METOPROLOL [Concomitant]

REACTIONS (3)
  - DISCOMFORT [None]
  - LETHARGY [None]
  - SINUS CONGESTION [None]
